FAERS Safety Report 5013842-9 (Version None)
Quarter: 2006Q2

REPORT INFORMATION
  Report Type: 
  Country: None (occurrence: None)
  Receive Date: 20060530
  Receipt Date: 20060515
  Transmission Date: 20061013
  Serious: Yes (Life-Threatening, Hospitalization, Disabling)
  Sender: FDA-Public Use
  Company Number: GB-ROCHE-447825

PATIENT
  Age: 15 Year
  Sex: Female

DRUGS (11)
  1. MYCOPHENOLATE MOFETIL [Suspect]
     Route: 048
     Dates: start: 20060415, end: 20060429
  2. FK506 [Suspect]
     Route: 048
     Dates: start: 20060415
  3. FK506 [Suspect]
     Route: 048
     Dates: start: 20060419
  4. PREDNISOLONE [Suspect]
     Route: 048
     Dates: start: 20060415
  5. DAPSONE [Concomitant]
  6. ASPIRIN [Concomitant]
  7. OMEPRAZOLE [Concomitant]
  8. ALFACALCIDOL [Concomitant]
  9. SODIUM BICARBONATE [Concomitant]
  10. FUROSEMIDE [Concomitant]
  11. ETHINYL ESTRADIOL TAB [Concomitant]

REACTIONS (4)
  - COMA [None]
  - DRUG LEVEL INCREASED [None]
  - ENCEPHALOPATHY [None]
  - INFECTION [None]
